FAERS Safety Report 19978719 (Version 1)
Quarter: 2021Q4

REPORT INFORMATION
  Report Type: Report from Study
  Country: US (occurrence: US)
  Receive Date: 20211020
  Receipt Date: 20211020
  Transmission Date: 20220304
  Serious: Yes (Other)
  Sender: FDA-Public Use
  Company Number: US-GILEAD-2021-0550872

PATIENT
  Age: 64 Year
  Sex: Female

DRUGS (2)
  1. AMBRISENTAN [Suspect]
     Active Substance: AMBRISENTAN
     Indication: Product used for unknown indication
     Dosage: 10 MG
     Route: 065
     Dates: start: 20160930
  2. AMBRISENTAN [Suspect]
     Active Substance: AMBRISENTAN
     Dosage: 5 MG
     Route: 065

REACTIONS (7)
  - Rheumatoid arthritis [Unknown]
  - Sitting disability [Unknown]
  - Fall [Unknown]
  - Malaise [Not Recovered/Not Resolved]
  - Confusional state [Unknown]
  - Pain in extremity [Unknown]
  - Product use issue [Not Recovered/Not Resolved]
